FAERS Safety Report 25989570 (Version 1)
Quarter: 2025Q4

REPORT INFORMATION
  Report Type: Spontaneous
  Country: GB (occurrence: GB)
  Receive Date: 20251103
  Receipt Date: 20251103
  Transmission Date: 20260118
  Serious: Yes (Death, Other)
  Sender: AMGEN
  Company Number: GB-AMGEN-GBRSP2025215076

PATIENT

DRUGS (1)
  1. EVOLOCUMAB [Suspect]
     Active Substance: EVOLOCUMAB
     Indication: Prophylaxis
     Dosage: UNK
     Route: 065

REACTIONS (7)
  - Death [Fatal]
  - Cardiovascular disorder [Fatal]
  - Cerebrovascular accident [Unknown]
  - Myocardial infarction [Unknown]
  - Limb amputation [Unknown]
  - Peripheral ischaemia [Unknown]
  - Therapy non-responder [Unknown]
